FAERS Safety Report 9079913 (Version 1)
Quarter: 2013Q1

REPORT INFORMATION
  Report Type: Spontaneous
  Country: US (occurrence: US)
  Receive Date: 20130130
  Receipt Date: 20130130
  Transmission Date: 20140127
  Serious: No
  Sender: FDA-Public Use
  Company Number: US-ABBOTT-12P-163-0940940-00

PATIENT
  Sex: 0

DRUGS (5)
  1. HUMIRA 40 MG/ 0.8 ML PRE-FILLED SYRINGE [Suspect]
     Indication: PRODUCT USED FOR UNKNOWN INDICATION
     Route: 058
  2. PREDNISONE [Suspect]
     Indication: PRODUCT USED FOR UNKNOWN INDICATION
  3. PREDNISONE [Suspect]
  4. PREDNISONE [Suspect]
     Dosage: 10 MG
  5. PREDNISONE [Suspect]
     Dosage: 7.5 MG DAY

REACTIONS (7)
  - Fatigue [Unknown]
  - Flatulence [Unknown]
  - Unevaluable event [Unknown]
  - Insomnia [Unknown]
  - Gastrointestinal candidiasis [None]
  - Chapped lips [Unknown]
  - Hypersomnia [Unknown]
